FAERS Safety Report 6094160-7 (Version None)
Quarter: 2009Q1

REPORT INFORMATION
  Report Type: 
  Country: None (occurrence: None)
  Receive Date: 20090226
  Receipt Date: 20090217
  Transmission Date: 20090719
  Serious: Yes (Death)
  Sender: FDA-Public Use
  Company Number: US-MERCK-0902USA03062

PATIENT
  Age: 57 Year
  Sex: Female

DRUGS (12)
  1. DECADRON [Suspect]
     Indication: LYMPHOHISTIOCYTOSIS
     Route: 048
  2. DECADRON [Suspect]
     Indication: HISTIOCYTOSIS HAEMATOPHAGIC
     Route: 048
  3. FILGRASTIM [Concomitant]
     Route: 065
  4. DARBEPOETIN ALFA [Concomitant]
     Route: 065
  5. ALBUMIN HUMAN [Concomitant]
     Route: 065
  6. PRIMAXIN [Concomitant]
     Route: 065
  7. DIFLUCAN [Concomitant]
     Route: 065
  8. ACYCLOVIR [Concomitant]
     Route: 065
  9. PROTONIX [Concomitant]
     Route: 065
  10. FOLIC ACID [Concomitant]
     Route: 065
  11. CYANOCOBALAMIN [Concomitant]
     Route: 065
  12. AZATHIOPRINE [Suspect]
     Route: 065

REACTIONS (2)
  - CYTOMEGALOVIRUS INFECTION [None]
  - EPSTEIN-BARR VIRUS INFECTION [None]
